FAERS Safety Report 4867420-2 (Version None)
Quarter: 2005Q4

REPORT INFORMATION
  Report Type: 
  Country: None (occurrence: None)
  Receive Date: 20051222
  Receipt Date: 20051212
  Transmission Date: 20060501
  Serious: Yes (Other)
  Sender: FDA-Public Use
  Company Number: 2005137194

PATIENT
  Sex: Female
  Weight: 65.7716 kg

DRUGS (3)
  1. XALATAN [Suspect]
     Indication: GLAUCOMA
     Dosage: (DAILY INTERVAL:  EVERY DAY), OPHTHALMIC
     Route: 047
     Dates: start: 20020101
  2. TIMOLOL MALEATE [Concomitant]
  3. ACTONEL [Concomitant]

REACTIONS (2)
  - CATARACT OPERATION [None]
  - PHARMACEUTICAL PRODUCT COMPLAINT [None]
